FAERS Safety Report 18900677 (Version 1)
Quarter: 2021Q1

REPORT INFORMATION
  Report Type: Spontaneous
  Country: US (occurrence: US)
  Receive Date: 20210216
  Receipt Date: 20210216
  Transmission Date: 20210420
  Serious: No
  Sender: FDA-Public Use
  Company Number: US-SA-2021SA050850

PATIENT
  Age: 60 Year
  Sex: Female

DRUGS (3)
  1. METFORMIN HYDROCHLORIDE. [Suspect]
     Active Substance: METFORMIN HYDROCHLORIDE
     Dosage: UNK
  2. DUPIXENT [Suspect]
     Active Substance: DUPILUMAB
     Indication: DERMATITIS ATOPIC
     Dosage: 300 MG, QOW
     Route: 058
     Dates: start: 201805
  3. MILK THISTLE [SILYBUM MARIANUM SEED] [Concomitant]
     Dosage: UNK

REACTIONS (8)
  - Blood pressure increased [Unknown]
  - Pruritus [Unknown]
  - Injection site discolouration [Unknown]
  - Fall [Unknown]
  - Eye pruritus [Unknown]
  - Intervertebral disc protrusion [Unknown]
  - Dry eye [Unknown]
  - Skin exfoliation [Unknown]
